FAERS Safety Report 24179140 (Version 1)
Quarter: 2024Q3

REPORT INFORMATION
  Report Type: Spontaneous
  Country: US (occurrence: US)
  Receive Date: 20240806
  Receipt Date: 20240806
  Transmission Date: 20241017
  Serious: No
  Sender: NOVARTIS
  Company Number: US-002147023-NVSC2024US159236

PATIENT

DRUGS (1)
  1. VIJOICE [Suspect]
     Active Substance: ALPELISIB
     Indication: Multiple congenital abnormalities
     Dosage: 125 MG, QD
     Route: 065

REACTIONS (3)
  - Hypoaesthesia [Unknown]
  - Swelling [Unknown]
  - Pain [Unknown]
